FAERS Safety Report 6871120-7 (Version None)
Quarter: 2010Q3

REPORT INFORMATION
  Report Type: 
  Country: None (occurrence: None)
  Receive Date: 20100721
  Receipt Date: 20100713
  Transmission Date: 20110219
  Serious: Yes (Life-Threatening, Hospitalization)
  Sender: FDA-Public Use
  Company Number: MYVW-1007S-0049

PATIENT
  Age: 76 Year
  Sex: Female
  Weight: 81.6475 kg

DRUGS (11)
  1. MYOVIEW [Suspect]
     Indication: CHEST PAIN
     Dosage: 414.4 MBQ, SINGLE DOSE , I.V.;  1207.1 MBQ, SINGLE DOSE, I.V.
     Route: 042
     Dates: start: 20100602, end: 20100602
  2. MYOVIEW [Suspect]
     Indication: SURGERY
     Dosage: 414.4 MBQ, SINGLE DOSE , I.V.;  1207.1 MBQ, SINGLE DOSE, I.V.
     Route: 042
     Dates: start: 20100602, end: 20100602
  3. MYOVIEW [Suspect]
     Indication: CHEST PAIN
     Dosage: 414.4 MBQ, SINGLE DOSE , I.V.;  1207.1 MBQ, SINGLE DOSE, I.V.
     Route: 042
     Dates: start: 20100602, end: 20100602
  4. MYOVIEW [Suspect]
     Indication: SURGERY
     Dosage: 414.4 MBQ, SINGLE DOSE , I.V.;  1207.1 MBQ, SINGLE DOSE, I.V.
     Route: 042
     Dates: start: 20100602, end: 20100602
  5. PERSANTINE [Suspect]
     Dosage: 46.5 MG, SINGLE DOSE, I.V.
     Route: 042
     Dates: start: 20100602, end: 20100602
  6. AMINOPHYLLINE [Suspect]
     Dosage: 100 MG, SINGLE  DOSE , I.V.
     Route: 042
     Dates: start: 20100602, end: 20100602
  7. TECHNETIUM (TC99M) GENERATOR (SODIUM PERTECHNETATE TC99M) [Concomitant]
  8. ESOMEPRAZOLE MAGNESIUM (NEXIUM) [Concomitant]
  9. SYNTHROID [Concomitant]
  10. HYDROCHLOROTHIAZIDE [Concomitant]
  11. TYLENOL W/ CODEINE NO. 3 [Concomitant]

REACTIONS (7)
  - BLISTER [None]
  - DIARRHOEA [None]
  - DIZZINESS [None]
  - INJECTION SITE DISCOLOURATION [None]
  - NAUSEA [None]
  - RENAL FAILURE [None]
  - VOMITING [None]
